FAERS Safety Report 4633913-6 (Version None)
Quarter: 2005Q2

REPORT INFORMATION
  Report Type: 
  Country: None (occurrence: None)
  Receive Date: 20050325
  Receipt Date: 20050105
  Transmission Date: 20051028
  Serious: No
  Sender: FDA-Public Use
  Company Number: USA041287175

PATIENT
  Age: 42 Year
  Sex: Female

DRUGS (1)
  1. FORTEO [Suspect]
     Indication: OSTEOPOROSIS

REACTIONS (2)
  - BONE DISORDER [None]
  - UPPER RESPIRATORY TRACT INFECTION [None]
